FAERS Safety Report 4621721-1 (Version None)
Quarter: 2005Q1

REPORT INFORMATION
  Report Type: 
  Country: None (occurrence: None)
  Receive Date: 20050329
  Receipt Date: 20040928
  Transmission Date: 20050727
  Serious: Yes (Other)
  Sender: FDA-Public Use
  Company Number: PHEH2004US10391

PATIENT
  Age: 67 Year
  Sex: Male

DRUGS (3)
  1. RADIATION THERAPY [Concomitant]
     Dosage: 6660 CGI TO PELVIS
     Dates: start: 20021223, end: 20030213
  2. ZOMETA [Suspect]
     Indication: PROSTATE CANCER
     Dosage: 4 MG, Q 4 WEEKS
     Route: 042
     Dates: start: 20030701, end: 20040901
  3. DECADRON [Concomitant]
     Dates: start: 20020729, end: 20020930

REACTIONS (15)
  - BONE DISORDER [None]
  - ENDODONTIC PROCEDURE [None]
  - INFECTION [None]
  - JAW OPERATION [None]
  - MUCOSAL ULCERATION [None]
  - MUCOUS MEMBRANE DISORDER [None]
  - ORAL PAIN [None]
  - OSTEOMYELITIS [None]
  - OSTEONECROSIS [None]
  - PAIN IN JAW [None]
  - POSTOPERATIVE INFECTION [None]
  - PURULENCE [None]
  - PYREXIA [None]
  - TOOTH DISORDER [None]
  - TOOTH EXTRACTION [None]
